FAERS Safety Report 5147370-7 (Version None)
Quarter: 2006Q4

REPORT INFORMATION
  Report Type: 
  Country: None (occurrence: None)
  Receive Date: 20061103
  Receipt Date: 20061020
  Transmission Date: 20070319
  Serious: Yes (Life-Threatening, Hospitalization)
  Sender: FDA-Public Use
  Company Number: 2006S1008267

PATIENT
  Age: 78 Year
  Sex: Male
  Weight: 79.3795 kg

DRUGS (5)
  1. FENTANYL TRANSDERMAL SYSTEM [Suspect]
     Indication: NEURALGIA
     Dosage: 75 UG/HR; Q3D; TDER
     Route: 062
     Dates: start: 20060801, end: 20060803
  2. ACETAMINOPHEN AND HYDROCODONE BITARTRATE [Concomitant]
  3. GABAPENTIN [Concomitant]
  4. ACYCLOVIR [Concomitant]
  5. PREDNISONE TAB [Concomitant]

REACTIONS (5)
  - ACUTE MYOCARDIAL INFARCTION [None]
  - ARTERIOSPASM CORONARY [None]
  - ASTHENIA [None]
  - BRADYCARDIA [None]
  - PRESYNCOPE [None]
